FAERS Safety Report 10190341 (Version 2)
Quarter: 2015Q1

REPORT INFORMATION
  Report Type: Spontaneous
  Country: SK (occurrence: SK)
  Receive Date: 20140522
  Receipt Date: 20150312
  Transmission Date: 20150720
  Serious: Yes (Other)
  Sender: FDA-Public Use
  Company Number: SK-BAXTER-2013BAX049251

PATIENT
  Sex: Female
  Weight: 80 kg

DRUGS (1)
  1. KIOVIG [Suspect]
     Active Substance: HUMAN IMMUNOGLOBULIN G
     Indication: HYPOGAMMAGLOBULINAEMIA
     Dosage: WITHOUT A PUMP
     Route: 065
     Dates: start: 20131205, end: 20131205

REACTIONS (3)
  - Chills [Recovered/Resolved]
  - Blood pressure abnormal [Recovered/Resolved]
  - Pulse abnormal [Recovered/Resolved]

NARRATIVE: CASE EVENT DATE: 20131205
